FAERS Safety Report 9501341 (Version 1)
Quarter: 2013Q1

REPORT INFORMATION
  Report Type: Spontaneous
  Country: US (occurrence: None)
  Receive Date: 20130225
  Receipt Date: 20130225
  Transmission Date: 20140127
  Serious: No
  Sender: FDA-Public Use
  Company Number: 2012-410

PATIENT
  Age: 52 Year
  Sex: Female

DRUGS (4)
  1. PRIALT (ZICONOTIDE) INTRATHECAL INFUSION [Suspect]
     Indication: PAIN
     Dosage: 5MCG, BOLUS, INTRATHECAL
     Route: 037
     Dates: start: 201112, end: 201112
  2. OXYMORPHONE [Concomitant]
  3. OXYCODONE (OXYCODONE HYDROCHLORIDE) (OXYCODONE) [Concomitant]
  4. BUPRENORPHINE (BUPRENORPHINE) [Concomitant]

REACTIONS (2)
  - Urinary retention [None]
  - Somnolence [None]
